FAERS Safety Report 5257668-X (Version None)
Quarter: 2007Q1

REPORT INFORMATION
  Report Type: 
  Country: None (occurrence: None)
  Receive Date: 20070302
  Receipt Date: 20061218
  Transmission Date: 20070707
  Serious: Yes (Death, Hospitalization)
  Sender: FDA-Public Use
  Company Number: 028-C5013-06040366

PATIENT
  Age: 56 Year
  Sex: Male
  Weight: 61 kg

DRUGS (9)
  1. CC-5013 (LENALIDOMIDE) (CAPSULES) [Suspect]
     Indication: MULTIPLE MYELOMA
     Dosage: 25 MG, OD, ORAL
     Route: 048
     Dates: start: 20060322, end: 20060325
  2. DEXAMETHASONE TAB [Suspect]
     Indication: MULTIPLE MYELOMA
     Dosage: 40 MG, OD, ORAL
     Route: 048
     Dates: start: 20060322, end: 20060325
  3. DURAGESIC-100 [Concomitant]
  4. DIFLUCAN [Concomitant]
  5. NABILONE (NABILONE) [Concomitant]
  6. VALTREX [Concomitant]
  7. DILAUDID [Concomitant]
  8. PEN-V (PHENOXYMETHYLPENICILLIN) [Concomitant]
  9. SEPTRA [Concomitant]

REACTIONS (22)
  - AGITATION [None]
  - ASTHENIA [None]
  - BACTERIAL INFECTION [None]
  - BLOOD CREATININE INCREASED [None]
  - BLOOD UREA INCREASED [None]
  - CONFUSIONAL STATE [None]
  - DECREASED APPETITE [None]
  - ESCHERICHIA INFECTION [None]
  - HEADACHE [None]
  - HYPOKALAEMIA [None]
  - HYPONATRAEMIA [None]
  - NECK PAIN [None]
  - NERVOUS SYSTEM DISORDER [None]
  - PANCYTOPENIA [None]
  - PNEUMONIA [None]
  - PYREXIA [None]
  - SEPSIS [None]
  - SPEECH DISORDER [None]
  - TACHYCARDIA [None]
  - TACHYPNOEA [None]
  - UNRESPONSIVE TO STIMULI [None]
  - VOMITING [None]
